FAERS Safety Report 9023587 (Version 1)
Quarter: 2013Q1

REPORT INFORMATION
  Report Type: Spontaneous
  Country: US (occurrence: US)
  Receive Date: 20130121
  Receipt Date: 20130121
  Transmission Date: 20140127
  Serious: No
  Sender: FDA-Public Use
  Company Number: US-UPSHER-SMITH LABORATORIES, INC.-12001879

PATIENT
  Age: 54 None
  Sex: Female

DRUGS (6)
  1. AMANTADINE HYDROCHLORIDE [Suspect]
     Indication: PARKINSON^S DISEASE
     Dosage: 100 MG, TID
     Route: 048
     Dates: start: 20120809, end: 20120812
  2. AMANTADINE HYDROCHLORIDE [Suspect]
     Dosage: 50 MG, 6X/D
     Route: 048
     Dates: start: 20120813
  3. AZILECT [Concomitant]
     Indication: PARKINSON^S DISEASE
     Dosage: UNK
  4. CARBIDOPA/LEVODOPA [Concomitant]
     Indication: PARKINSON^S DISEASE
     Dosage: UNK
  5. HYDROCODONE [Concomitant]
     Indication: BACK PAIN
     Dosage: UNK
  6. HYDROCHLOROTHIAZIDE [Concomitant]
     Indication: HYPERTENSION
     Dosage: UNK

REACTIONS (15)
  - Chest pain [Recovering/Resolving]
  - Dyspnoea [Recovering/Resolving]
  - Hot flush [Recovering/Resolving]
  - Dizziness [Recovering/Resolving]
  - Tinnitus [Not Recovered/Not Resolved]
  - Somnolence [Recovering/Resolving]
  - Arthralgia [Recovering/Resolving]
  - Panic reaction [Recovering/Resolving]
  - Chills [Recovered/Resolved]
  - Headache [Recovering/Resolving]
  - Photopsia [Recovered/Resolved]
  - Visual impairment [Recovered/Resolved]
  - Gait disturbance [Recovering/Resolving]
  - Rash [Recovered/Resolved]
  - Movement disorder [Recovering/Resolving]
